APPROVED DRUG PRODUCT: ALOPRIM
Active Ingredient: ALLOPURINOL SODIUM
Strength: EQ 500MG BASE/VIAL
Dosage Form/Route: INJECTABLE;INJECTION
Application: N020298 | Product #001 | TE Code: AP
Applicant: MYLAN INSTITUTIONAL LLC A VIATRIS CO
Approved: May 17, 1996 | RLD: Yes | RS: Yes | Type: RX